FAERS Safety Report 13738772 (Version 1)
Quarter: 2017Q3

REPORT INFORMATION
  Report Type: Spontaneous
  Country: US (occurrence: US)
  Receive Date: 20170710
  Receipt Date: 20170710
  Transmission Date: 20171127
  Serious: Yes (Hospitalization, Other)
  Sender: FDA-Public Use
  Company Number: US-SAOL THERAPEUTICS-2017SAO00601

PATIENT
  Sex: Male

DRUGS (3)
  1. BACLOFEN. [Suspect]
     Active Substance: BACLOFEN
     Dosage: 534.3 ?G, \DAY
     Route: 037
     Dates: start: 20160517, end: 20160531
  2. BUPIVICAINE [Suspect]
     Active Substance: BUPIVACAINE
     Dosage: 2.9931 MG, \DAY
     Route: 037
     Dates: start: 20160517, end: 20160531
  3. MORPHINE [Suspect]
     Active Substance: MORPHINE
     Dosage: 4.989 MG, \DAY
     Route: 037
     Dates: start: 20160517, end: 20160531

REACTIONS (4)
  - Device infusion issue [Recovered/Resolved]
  - Drug withdrawal syndrome [Unknown]
  - Overdose [Unknown]
  - Device failure [Recovered/Resolved]
